FAERS Safety Report 10647813 (Version 1)
Quarter: 2014Q4

REPORT INFORMATION
  Report Type: Report from Study
  Country: FR (occurrence: FR)
  Receive Date: 20141212
  Receipt Date: 20141212
  Transmission Date: 20150529
  Serious: Yes (Other)
  Sender: FDA-Public Use
  Company Number: FR-ROCHE-1504520

PATIENT
  Age: 69 Year
  Sex: Female

DRUGS (9)
  1. LEXOMIL [Concomitant]
     Active Substance: BROMAZEPAM
     Route: 065
  2. RITUXIMAB [Suspect]
     Active Substance: RITUXIMAB
     Indication: DIFFUSE LARGE B-CELL LYMPHOMA
     Dosage: CYCLE 1
     Route: 042
     Dates: start: 20031009
  3. STILNOX [Concomitant]
     Active Substance: ZOLPIDEM TARTRATE
  4. LEVOTHYROX [Concomitant]
     Active Substance: LEVOTHYROXINE
  5. IDARUBICIN [Suspect]
     Active Substance: IDARUBICIN
     Indication: DIFFUSE LARGE B-CELL LYMPHOMA
     Dosage: 20 MG/M2; CYCLE 1
     Route: 048
     Dates: start: 20031010
  6. FLECAINE [Concomitant]
     Active Substance: FLECAINIDE
  7. ENDOXAN [Suspect]
     Active Substance: CYCLOPHOSPHAMIDE
     Indication: DIFFUSE LARGE B-CELL LYMPHOMA
     Dosage: 150 MG/M2
     Route: 048
     Dates: start: 20031010
  8. CELLTOP [Suspect]
     Active Substance: ETOPOSIDE
     Indication: DIFFUSE LARGE B-CELL LYMPHOMA
     Dosage: 100 MG/M2
     Route: 048
     Dates: start: 20031010
  9. GAVISCON (ALGINIC ACID) [Concomitant]

REACTIONS (1)
  - Malignant melanoma in situ [Recovered/Resolved]

NARRATIVE: CASE EVENT DATE: 20040511
